FAERS Safety Report 25844106 (Version 1)
Quarter: 2025Q3

REPORT INFORMATION
  Report Type: Spontaneous
  Country: CN (occurrence: CN)
  Receive Date: 20250925
  Receipt Date: 20250925
  Transmission Date: 20251021
  Serious: No
  Sender: MERCK SHARP & DOHME LLC
  Company Number: CN-009507513-2330847

PATIENT
  Age: 69 Year
  Sex: Male

DRUGS (4)
  1. MOLNUPIRAVIR [Suspect]
     Active Substance: MOLNUPIRAVIR
     Indication: COVID-19 treatment
     Dosage: 0.8 G TAKEN ORALLY TWICE DAILY FOR 5 DAYS
     Route: 048
     Dates: start: 202407, end: 2024
  2. MEROPENEM [Concomitant]
     Active Substance: MEROPENEM
     Indication: Antibiotic therapy
     Dosage: 1 G INTRAVENOUS INFUSION EVERY 8 H FOR 14 DAYS
     Route: 042
     Dates: start: 202407, end: 2024
  3. VORICONAZOLE [Concomitant]
     Active Substance: VORICONAZOLE
     Indication: Antifungal treatment
     Dosage: 0.2 G TAKEN ORALLY TWICE DAILY FOR 14 DAYS
     Route: 048
     Dates: start: 202407, end: 2024
  4. GANCICLOVIR [Concomitant]
     Active Substance: GANCICLOVIR
     Indication: Cytomegalovirus infection
     Dosage: 0.25 G INTRAVENOUS INFUSION EVERY 24 H FOR 14 DAYS
     Route: 042
     Dates: start: 202407, end: 2024

REACTIONS (1)
  - Product use in unapproved indication [Unknown]

NARRATIVE: CASE EVENT DATE: 20240701
